FAERS Safety Report 6669725-1 (Version None)
Quarter: 2010Q2

REPORT INFORMATION
  Report Type: 
  Country: None (occurrence: None)
  Receive Date: 20100402
  Receipt Date: 20100301
  Transmission Date: 20101027
  Serious: No
  Sender: FDA-Public Use
  Company Number: TCI2010A00714

PATIENT
  Age: 66 Year
  Sex: Female

DRUGS (3)
  1. LANSOPRAZOLE [Suspect]
     Indication: GASTRIC ULCER
     Dosage: 30 MG (30 MG, 1 IN 1 D), PER ORAL
     Route: 048
     Dates: start: 20100201, end: 20100301
  2. HICEE GRANULES 25% (ASCORBIC ACID) [Concomitant]
  3. IRON PREPARATIONS [Concomitant]

REACTIONS (1)
  - VISION BLURRED [None]
